FAERS Safety Report 11903310 (Version 3)
Quarter: 2016Q1

REPORT INFORMATION
  Report Type: Spontaneous
  Country: AT (occurrence: AT)
  Receive Date: 20160110
  Receipt Date: 20160301
  Transmission Date: 20160526
  Serious: Yes (Other)
  Sender: FDA-Public Use
  Company Number: PHHY2016AT001237

PATIENT
  Sex: Female

DRUGS (1)
  1. VOTUBIA [Suspect]
     Active Substance: EVEROLIMUS
     Indication: BRAIN NEOPLASM MALIGNANT
     Dosage: UNK
     Route: 065
     Dates: start: 2015

REACTIONS (3)
  - Intracranial mass [Unknown]
  - Malignant neoplasm progression [Not Recovered/Not Resolved]
  - Drug administered to patient of inappropriate age [Unknown]
